FAERS Safety Report 7598046-8 (Version None)
Quarter: 2011Q3

REPORT INFORMATION
  Report Type: 
  Country: None (occurrence: None)
  Receive Date: 20110708
  Receipt Date: 20110628
  Transmission Date: 20111222
  Serious: Yes (Hospitalization)
  Sender: FDA-Public Use
  Company Number: BR-MEDIMMUNE-MEDI-0013190

PATIENT
  Sex: Male
  Weight: 8.56 kg

DRUGS (6)
  1. CAPTOPRIL [Concomitant]
     Dosage: 1 TAB DILUTED IN 5L OF WATER
     Route: 048
     Dates: start: 20100330
  2. SYNAGIS [Suspect]
  3. FUROSEMIDE [Concomitant]
     Dosage: 1ML, 1 TAB DILUTED IN 5L OF WATER
     Route: 048
     Dates: start: 20100330
  4. SYNAGIS [Suspect]
     Indication: CARDIOMYOPATHY
     Route: 030
     Dates: start: 20100429
  5. SYNAGIS [Suspect]
     Indication: BRONCHOPULMONARY DYSPLASIA
  6. SPIRONOLACTONE [Concomitant]
     Indication: BRONCHOPULMONARY DYSPLASIA
     Dosage: 1.6ML, 1 TAB DILUTED IN 5L OF WATER
     Route: 048
     Dates: start: 20110425

REACTIONS (9)
  - DECREASED APPETITE [None]
  - PNEUMONIA [None]
  - BRONCHOSPASM [None]
  - SOMNOLENCE [None]
  - VOMITING [None]
  - ROTAVIRUS INFECTION [None]
  - DIARRHOEA [None]
  - PYREXIA [None]
  - MALAISE [None]
